APPROVED DRUG PRODUCT: ALBUTEROL SULFATE
Active Ingredient: ALBUTEROL SULFATE
Strength: EQ 0.042% BASE
Dosage Form/Route: SOLUTION;INHALATION
Application: A077772 | Product #002
Applicant: WATSON LABORATORIES INC
Approved: Sep 25, 2007 | RLD: No | RS: No | Type: DISCN